FAERS Safety Report 15518111 (Version 2)
Quarter: 2018Q4

REPORT INFORMATION
  Report Type: Spontaneous
  Country: DE (occurrence: DE)
  Receive Date: 20181017
  Receipt Date: 20181129
  Transmission Date: 20190205
  Serious: Yes (Death, Other)
  Sender: FDA-Public Use
  Company Number: DE-009507513-1810DEU003925

PATIENT
  Sex: Male
  Weight: 50 kg

DRUGS (2)
  1. ZINPLAVA [Suspect]
     Active Substance: BEZLOTOXUMAB
     Indication: CLOSTRIDIUM DIFFICILE INFECTION
     Dosage: 600 MILLIGRAM, ONCE
     Dates: start: 20180813, end: 20180813
  2. DIFICLIR [Concomitant]
     Active Substance: FIDAXOMICIN
     Indication: ANTIBIOTIC THERAPY
     Dosage: UNK

REACTIONS (2)
  - Clostridium difficile infection [Fatal]
  - Upper gastrointestinal haemorrhage [Recovered/Resolved]
